FAERS Safety Report 5249958-1 (Version None)
Quarter: 2007Q1

REPORT INFORMATION
  Report Type: 
  Country: None (occurrence: None)
  Receive Date: 20070220
  Receipt Date: 20060601
  Transmission Date: 20070707
  Serious: Yes (Hospitalization)
  Sender: FDA-Public Use
  Company Number: DSA_28228_2006

PATIENT
  Age: 80 Year
  Sex: Male

DRUGS (13)
  1. DILTIAZEM HCL [Suspect]
     Indication: ANGINA PECTORIS
     Dosage: 200 MG Q DAY PO
     Route: 048
     Dates: start: 20060417, end: 20060422
  2. DILTIAZEM HCL [Suspect]
     Indication: ARTERIOSPASM CORONARY
     Dosage: 200 MG Q DAY PO
     Route: 048
     Dates: start: 20060417, end: 20060422
  3. ALDACTONE [Concomitant]
  4. KERLONG [Concomitant]
  5. GASMET [Concomitant]
  6. CERCINE [Concomitant]
  7. DIOVAN [Concomitant]
  8. NELBIS [Concomitant]
  9. HARNAL D [Concomitant]
  10. AMLODIN [Concomitant]
  11. ASPIRIN [Concomitant]
  12. LASIX [Concomitant]
  13. ITOROL [Concomitant]

REACTIONS (7)
  - ABDOMINAL PAIN UPPER [None]
  - CONDITION AGGRAVATED [None]
  - OEDEMA PERIPHERAL [None]
  - RASH [None]
  - RENAL IMPAIRMENT [None]
  - SINUS BRADYCARDIA [None]
  - WEIGHT INCREASED [None]
